FAERS Safety Report 5930173-0 (Version None)
Quarter: 2008Q4

REPORT INFORMATION
  Report Type: 
  Country: None (occurrence: None)
  Receive Date: 20081024
  Receipt Date: 20081014
  Transmission Date: 20090506
  Serious: Yes (Congenital Anomaly)
  Sender: FDA-Public Use
  Company Number: GB-PFIZER INC-2008086724

PATIENT

DRUGS (1)
  1. SERTRALINE [Suspect]
     Route: 064

REACTIONS (1)
  - CONGENITAL HAND MALFORMATION [None]
